FAERS Safety Report 7586281-4 (Version None)
Quarter: 2011Q3

REPORT INFORMATION
  Report Type: 
  Country: None (occurrence: None)
  Receive Date: 20110701
  Receipt Date: 20110531
  Transmission Date: 20111222
  Serious: Yes (Hospitalization, Other)
  Sender: FDA-Public Use
  Company Number: US-BAYER-201032487NA

PATIENT
  Sex: Female
  Weight: 52.154 kg

DRUGS (3)
  1. DROSPIRENONE AND ETHINYL ESTRADIOL [Suspect]
     Indication: ACNE
     Dosage: UNK
     Route: 048
     Dates: start: 20070201, end: 20080801
  2. YASMIN [Suspect]
     Indication: ACNE
     Dosage: UNK UNK, QD
     Route: 048
     Dates: start: 20070201, end: 20080801
  3. YAZ [Suspect]
     Indication: ACNE
     Dosage: UNK
     Route: 048
     Dates: start: 20070201, end: 20080801

REACTIONS (16)
  - GALLBLADDER DISORDER [None]
  - PAIN [None]
  - ABDOMINAL DISCOMFORT [None]
  - PANCREATITIS ACUTE [None]
  - WEIGHT DECREASED [None]
  - PHANTOM PAIN [None]
  - BILIARY COLIC [None]
  - ABDOMINAL PAIN UPPER [None]
  - INCISION SITE INFECTION [None]
  - HICCUPS [None]
  - CHOLELITHIASIS [None]
  - POST GASTRIC SURGERY SYNDROME [None]
  - CHOLECYSTITIS ACUTE [None]
  - DIVERTICULITIS [None]
  - DIVERTICULUM [None]
  - GASTROOESOPHAGEAL REFLUX DISEASE [None]
